FAERS Safety Report 20669159 (Version 3)
Quarter: 2022Q2

REPORT INFORMATION
  Report Type: Spontaneous
  Country: US (occurrence: US)
  Receive Date: 20220404
  Receipt Date: 20220422
  Transmission Date: 20220721
  Serious: No
  Sender: FDA-Public Use
  Company Number: nICSR043

PATIENT
  Sex: 0

DRUGS (1)
  1. ASCLERA [Suspect]
     Active Substance: POLIDOCANOL

REACTIONS (3)
  - Injection site reaction [Unknown]
  - Injection site pruritus [Unknown]
  - Injection site urticaria [Unknown]

NARRATIVE: CASE EVENT DATE: 20220405
